FAERS Safety Report 14543664 (Version 1)
Quarter: 2018Q1

REPORT INFORMATION
  Report Type: Spontaneous
  Country: FR (occurrence: FR)
  Receive Date: 20180216
  Receipt Date: 20180216
  Transmission Date: 20180509
  Serious: Yes (Hospitalization)
  Sender: FDA-Public Use
  Company Number: FR-TEVA-2018-FR-857328

PATIENT
  Age: 49 Year
  Sex: Female
  Weight: 71 kg

DRUGS (10)
  1. RASILEZ [Concomitant]
     Active Substance: ALISKIREN
  2. TOPALGIC (TRAMADOL) [Concomitant]
     Active Substance: TRAMADOL HYDROCHLORIDE
  3. STAGID 700 MG [Concomitant]
     Active Substance: METFORMIN PAMOATE
  4. PARACETAMOL [Concomitant]
     Active Substance: ACETAMINOPHEN
  5. OGAST [Concomitant]
     Active Substance: LANSOPRAZOLE
  6. REMICADE [Suspect]
     Active Substance: INFLIXIMAB
     Indication: RHEUMATOID ARTHRITIS
     Dosage: 3MG/KG/8 SOW
     Dates: start: 20071116, end: 20161219
  7. SPECIAFOLDINE [Concomitant]
     Active Substance: FOLIC ACID
  8. METHOTREXATE. [Suspect]
     Active Substance: METHOTREXATE
     Indication: RHEUMATOID ARTHRITIS
     Route: 048
     Dates: start: 2004, end: 201703
  9. TRULICITY [Concomitant]
     Active Substance: DULAGLUTIDE
  10. EUPRESSYL [Concomitant]
     Active Substance: URAPIDIL

REACTIONS (2)
  - Invasive ductal breast carcinoma [Recovering/Resolving]
  - B-cell lymphoma [Recovering/Resolving]

NARRATIVE: CASE EVENT DATE: 201701
